FAERS Safety Report 20347088 (Version 1)
Quarter: 2022Q1

REPORT INFORMATION
  Report Type: Spontaneous
  Country: US (occurrence: US)
  Receive Date: 20220118
  Receipt Date: 20220118
  Transmission Date: 20220423
  Serious: Yes (Other)
  Sender: FDA-Public Use
  Company Number: US-ViiV Healthcare Limited-US2022GSK009023

PATIENT
  Age: 23 Year
  Sex: Female

DRUGS (1)
  1. TIVICAY [Suspect]
     Active Substance: DOLUTEGRAVIR SODIUM
     Indication: HIV infection
     Dosage: 50 MG, BID
     Route: 050

REACTIONS (4)
  - Pathogen resistance [Unknown]
  - Viral mutation identified [Unknown]
  - Wrong technique in product usage process [Unknown]
  - Incorrect route of product administration [Unknown]
